FAERS Safety Report 8816676 (Version 1)
Quarter: 2012Q4

REPORT INFORMATION
  Report Type: Spontaneous
  Country: US (occurrence: None)
  Receive Date: 20120928
  Receipt Date: 20120928
  Transmission Date: 20130627
  Serious: Yes (Hospitalization)
  Sender: FDA-Public Use
  Company Number: DSA_59841_2012

PATIENT
  Age: 60 Year
  Sex: Male

DRUGS (1)
  1. DILTIAZEM HYDROCHLORIDE [Suspect]
     Indication: SUICIDE ATTEMPT
     Dosage: (30-80 tablets (5,400 mg total); once Oral)

REACTIONS (7)
  - Suicide attempt [None]
  - Intentional overdose [None]
  - Hypotension [None]
  - Atrioventricular block first degree [None]
  - Electrocardiogram QT prolonged [None]
  - Blood glucose increased [None]
  - Haemodynamic instability [None]
